FAERS Safety Report 24771608 (Version 1)
Quarter: 2024Q4

REPORT INFORMATION
  Report Type: Spontaneous
  Country: US (occurrence: US)
  Receive Date: 20241224
  Receipt Date: 20241224
  Transmission Date: 20250115
  Serious: Yes (Other)
  Sender: AMGEN
  Company Number: US-AMGEN-USASP2024250300

PATIENT

DRUGS (5)
  1. CARFILZOMIB [Suspect]
     Active Substance: CARFILZOMIB
     Indication: Plasma cell myeloma refractory
     Dosage: UNK, IV ON DAYS 1, 2, 8, 9, 15 AND 16 OF A 28 D CYC (PART B, IN 3 COHORTS TO 36, 45 AND 56 MG/SQ.M)
     Route: 040
  2. FILANESIB [Suspect]
     Active Substance: FILANESIB
     Indication: Plasma cell myeloma refractory
     Dosage: 1.5 MILLIGRAM/SQ. METER, ON DAYS 1, 2, 15 AND 16
     Route: 040
  3. DEXAMETHASONE [Concomitant]
     Active Substance: DEXAMETHASONE
     Indication: Plasma cell myeloma refractory
     Dosage: UNK
     Route: 065
  4. BORTEZOMIB [Concomitant]
     Active Substance: BORTEZOMIB
     Indication: Plasma cell myeloma refractory
     Dosage: UNK
  5. LENALIDOMIDE [Concomitant]
     Active Substance: LENALIDOMIDE
     Indication: Plasma cell myeloma refractory
     Dosage: UNK

REACTIONS (27)
  - Bacteraemia [Unknown]
  - Renal impairment [Unknown]
  - Febrile neutropenia [Unknown]
  - Anaemia [Unknown]
  - Thrombocytopenia [Unknown]
  - Neutropenia [Unknown]
  - Neuropathy peripheral [Unknown]
  - Sepsis [Unknown]
  - Pneumonia [Unknown]
  - Cardiac failure [Unknown]
  - Lethargy [Unknown]
  - Sinusitis [Unknown]
  - Hypervolaemia [Unknown]
  - Lipase increased [Unknown]
  - Mucosal inflammation [Unknown]
  - Alanine aminotransferase increased [Unknown]
  - Aspartate aminotransferase increased [Unknown]
  - Diarrhoea [Unknown]
  - Dizziness [Unknown]
  - Pyrexia [Unknown]
  - Dyspnoea [Unknown]
  - Blood creatinine increased [Unknown]
  - Myalgia [Unknown]
  - Fatigue [Unknown]
  - Treatment noncompliance [Unknown]
  - Therapy partial responder [Unknown]
  - Therapy non-responder [Unknown]
